FAERS Safety Report 6646774-0 (Version None)
Quarter: 2010Q1

REPORT INFORMATION
  Report Type: 
  Country: None (occurrence: None)
  Receive Date: 20100323
  Receipt Date: 20100315
  Transmission Date: 20100710
  Serious: Yes (Hospitalization)
  Sender: FDA-Public Use
  Company Number: US-SANOFI-AVENTIS-2010SA016294

PATIENT
  Sex: Female
  Weight: 104 kg

DRUGS (9)
  1. PLAVIX [Suspect]
     Route: 048
     Dates: start: 20060101, end: 20100201
  2. PLAVIX [Suspect]
     Route: 048
     Dates: start: 20060101, end: 20100201
  3. RANOLAZINE [Concomitant]
  4. LIPITOR [Concomitant]
  5. NEBIVOLOL HCL [Concomitant]
  6. FUROSEMIDE [Concomitant]
  7. CLONIDINE [Concomitant]
  8. ISOSORBIDE [Concomitant]
  9. COZAAR [Concomitant]

REACTIONS (3)
  - BLISTER [None]
  - LOCALISED INFECTION [None]
  - OFF LABEL USE [None]
